FAERS Safety Report 6943434-3 (Version None)
Quarter: 2010Q3

REPORT INFORMATION
  Report Type: 
  Country: None (occurrence: None)
  Receive Date: 20100826
  Receipt Date: 20100816
  Transmission Date: 20110219
  Serious: Yes (Life-Threatening, Other)
  Sender: FDA-Public Use
  Company Number: JP-PFIZER INC-2010096983

PATIENT
  Sex: Female
  Weight: 45.8 kg

DRUGS (6)
  1. SUNITINIB MALATE [Suspect]
     Indication: RENAL CELL CARCINOMA
     Dosage: 50 MG, 1X/DAY
     Route: 048
     Dates: start: 20091111, end: 20100203
  2. AUGMENTIN '125' [Concomitant]
     Indication: RENAL CELL CARCINOMA
     Dosage: 200 MG/DAY 3 TIMES DAILY
     Route: 048
     Dates: start: 20091117, end: 20091207
  3. AMOXICILLIN TRIHYDRATE [Concomitant]
     Indication: RENAL CELL CARCINOMA
     Dosage: 250 MG/DAY 3 TIMES DAILY
     Route: 048
     Dates: start: 20091117
  4. DECADRON [Concomitant]
     Indication: RENAL CELL CARCINOMA
     Dosage: 0.5 MG, 1X/DAY
     Dates: start: 20091104, end: 20091110
  5. FAMOTIDINE [Concomitant]
     Indication: RENAL CELL CARCINOMA
     Dosage: 10 MG, 2X/DAY
     Route: 048
     Dates: start: 20091104, end: 20091201
  6. DEPAKENE [Concomitant]
     Indication: RENAL CELL CARCINOMA
     Dosage: 100 MG, 2X/DAY
     Route: 048
     Dates: start: 20091104

REACTIONS (3)
  - CEREBRAL HAEMORRHAGE [None]
  - INFECTION [None]
  - PLATELET COUNT DECREASED [None]
